FAERS Safety Report 5610781-7 (Version None)
Quarter: 2008Q1

REPORT INFORMATION
  Report Type: 
  Country: None (occurrence: None)
  Receive Date: 20080201
  Receipt Date: 20080123
  Transmission Date: 20080703
  Serious: Yes (Death)
  Sender: FDA-Public Use
  Company Number: US-BAYER-200812078GPV

PATIENT
  Age: 66 Year
  Sex: Female
  Weight: 59 kg

DRUGS (3)
  1. FLUDARA [Suspect]
     Indication: CHRONIC LYMPHOCYTIC LEUKAEMIA
     Route: 042
     Dates: start: 20070815, end: 20071224
  2. BISEPTOL [Concomitant]
     Dates: start: 20070814, end: 20080112
  3. GEVIRAN [Concomitant]
     Dates: start: 20070814, end: 20080112

REACTIONS (1)
  - PULMONARY OEDEMA [None]
